FAERS Safety Report 4388448-5 (Version None)
Quarter: 2004Q3

REPORT INFORMATION
  Report Type: 
  Country: None (occurrence: None)
  Receive Date: 20040701
  Receipt Date: 20040521
  Transmission Date: 20050211
  Serious: Yes (Other)
  Sender: FDA-Public Use
  Company Number: US-BRISTOL-MYERS SQUIBB COMPANY-12593950

PATIENT

DRUGS (1)
  1. CHOLESTYRAMINE [Suspect]

REACTIONS (2)
  - CHOKING [None]
  - PHARMACEUTICAL PRODUCT COMPLAINT [None]
